FAERS Safety Report 11053676 (Version 3)
Quarter: 2015Q4

REPORT INFORMATION
  Report Type: Report from Study
  Country: US (occurrence: US)
  Receive Date: 20150421
  Receipt Date: 20151116
  Transmission Date: 20160304
  Serious: Yes (Other)
  Sender: FDA-Public Use
  Company Number: PHEH2015US006799

PATIENT
  Sex: Male
  Weight: 87.53 kg

DRUGS (1)
  1. EXJADE [Suspect]
     Active Substance: DEFERASIROX
     Indication: MYELODYSPLASTIC SYNDROME
     Route: 065
     Dates: end: 20150319

REACTIONS (2)
  - Cytopenia [Unknown]
  - Pancytopenia [Unknown]
